FAERS Safety Report 7054985-8 (Version None)
Quarter: 2010Q4

REPORT INFORMATION
  Report Type: 
  Country: None (occurrence: None)
  Receive Date: 20101021
  Receipt Date: 20101012
  Transmission Date: 20110411
  Serious: Yes (Other)
  Sender: FDA-Public Use
  Company Number: CA-JNJFOC-20100900727

PATIENT
  Age: 45 Year
  Sex: Female

DRUGS (5)
  1. ELMIRON [Suspect]
     Indication: CYSTITIS
     Route: 048
  2. ELMIRON [Suspect]
     Route: 048
  3. ELMIRON [Suspect]
     Indication: URINARY INCONTINENCE
     Route: 048
  4. ELMIRON [Suspect]
     Route: 048
  5. UNSPECIFIED ASTHMA INHALER [Concomitant]
     Route: 065

REACTIONS (7)
  - CHROMATURIA [None]
  - CONFUSIONAL STATE [None]
  - DIZZINESS [None]
  - FATIGUE [None]
  - HEADACHE [None]
  - OROPHARYNGEAL PAIN [None]
  - SWOLLEN TONGUE [None]
